FAERS Safety Report 12456868 (Version 3)
Quarter: 2016Q4

REPORT INFORMATION
  Report Type: Spontaneous
  Country: US (occurrence: US)
  Receive Date: 20160610
  Receipt Date: 20161115
  Transmission Date: 20170207
  Serious: No
  Sender: FDA-Public Use
  Company Number: US-GLAXOSMITHKLINE-US2016075269

PATIENT
  Sex: Female

DRUGS (8)
  1. ADVAIR DISKUS [Suspect]
     Active Substance: FLUTICASONE PROPIONATE\SALMETEROL XINAFOATE
     Indication: CHRONIC OBSTRUCTIVE PULMONARY DISEASE
     Dosage: 1 PUFF(S), BID
     Route: 055
     Dates: start: 2010
  2. BUPROPION XL [Suspect]
     Active Substance: BUPROPION
     Dosage: 1 DF, QD
     Route: 048
     Dates: start: 2015
  3. ALBUTEROL INHALER [Concomitant]
     Active Substance: ALBUTEROL
  4. MONTELUKAST [Concomitant]
     Active Substance: MONTELUKAST SODIUM
  5. TRAMADOL. [Concomitant]
     Active Substance: TRAMADOL
  6. ADVAIR DISKUS [Suspect]
     Active Substance: FLUTICASONE PROPIONATE\SALMETEROL XINAFOATE
     Indication: EMPHYSEMA
     Dosage: 1 PUFF(S), QD
     Dates: start: 201504
  7. PAROXETINE. [Concomitant]
     Active Substance: PAROXETINE
  8. LORAZEPAM. [Concomitant]
     Active Substance: LORAZEPAM

REACTIONS (3)
  - Nightmare [Unknown]
  - Intentional underdose [Unknown]
  - Expired product administered [Unknown]
